FAERS Safety Report 5358499-2 (Version None)
Quarter: 2007Q2

REPORT INFORMATION
  Report Type: 
  Country: None (occurrence: None)
  Receive Date: 20070601
  Receipt Date: 20070202
  Transmission Date: 20071010
  Serious: No
  Sender: FDA-Public Use
  Company Number: PHEH2007US01686

PATIENT
  Age: 56 Year
  Sex: Male

DRUGS (2)
  1. ENABLEX [Suspect]
     Indication: INCONTINENCE
     Dosage: SEE IMAGE
     Route: 048
     Dates: start: 20070125, end: 20070203
  2. ENABLEX [Suspect]
     Indication: INCONTINENCE
     Dosage: SEE IMAGE
     Route: 048
     Dates: start: 20070204, end: 20070210

REACTIONS (1)
  - DRUG INEFFECTIVE [None]
